FAERS Safety Report 26121511 (Version 2)
Quarter: 2025Q4

REPORT INFORMATION
  Report Type: Spontaneous
  Country: US (occurrence: US)
  Receive Date: 20251204
  Receipt Date: 20251226
  Transmission Date: 20260118
  Serious: Yes (Hospitalization, Other)
  Sender: CHATTEM
  Company Number: US-OPELLA-2025OHG033931

PATIENT
  Age: 79 Year
  Sex: Male

DRUGS (1)
  1. DIPHENHYDRAMINE [Suspect]
     Active Substance: DIPHENHYDRAMINE
     Indication: Product used for unknown indication
     Dosage: APPROXIMATELY 1,000-1,500 MG (15.6-23.4 MG/KG)
     Route: 048

REACTIONS (6)
  - Confusional state [Unknown]
  - Hyperhidrosis [Unknown]
  - Agitation [Unknown]
  - Bundle branch block bilateral [Recovered/Resolved]
  - Electrocardiogram QT prolonged [Recovered/Resolved]
  - Intentional overdose [Unknown]
